FAERS Safety Report 13097468 (Version 1)
Quarter: 2017Q1

REPORT INFORMATION
  Report Type: Spontaneous
  Country: US (occurrence: US)
  Receive Date: 20170109
  Receipt Date: 20170109
  Transmission Date: 20170428
  Serious: Yes (Death, Hospitalization)
  Sender: FDA-Public Use
  Company Number: US-BAYER-2017-001511

PATIENT
  Age: 53 Year
  Sex: Male

DRUGS (5)
  1. CARISOPRODOL. [Suspect]
     Active Substance: CARISOPRODOL
  2. ACETYLSALICYLIC ACID (} 100 MG) [Suspect]
     Active Substance: ASPIRIN
  3. ACETAMINOPHEN W/OXYCODONE [Suspect]
     Active Substance: ACETAMINOPHEN\OXYCODONE HYDROCHLORIDE
  4. MORPHINE [Suspect]
     Active Substance: MORPHINE
  5. PREGABALIN. [Suspect]
     Active Substance: PREGABALIN

REACTIONS (1)
  - Toxicity to various agents [Fatal]
